FAERS Safety Report 8591041-1 (Version None)
Quarter: 2012Q3

REPORT INFORMATION
  Report Type: 
  Country: None (occurrence: None)
  Receive Date: 20120813
  Receipt Date: 20120807
  Transmission Date: 20120928
  Serious: Yes (Life-Threatening, Other)
  Sender: FDA-Public Use
  Company Number: JP-PFIZER INC-2012175139

PATIENT
  Age: 93 Year
  Sex: Female
  Weight: 42.2 kg

DRUGS (9)
  1. DETANTOL [Concomitant]
     Indication: HYPERTENSION
     Dosage: 6 MG, 1X/DAY
     Route: 048
     Dates: start: 20101222
  2. METHISTA [Concomitant]
     Indication: BRONCHITIS CHRONIC
     Dosage: 250 MG, 2X/DAY
     Route: 048
  3. POSTERISAN FORTE [Concomitant]
     Indication: HAEMORRHOIDS
     Dosage: 2 G, 1X/DAY
     Route: 054
     Dates: start: 20070702
  4. AMARYL [Interacting]
     Indication: TYPE 2 DIABETES MELLITUS
     Dosage: 1 MG, 1X/DAY
     Route: 048
     Dates: start: 20090618, end: 20120718
  5. SENEVACUL [Concomitant]
     Indication: CONSTIPATION
     Dosage: 12 MG, 1X/DAY
     Route: 048
  6. SHINLUCK [Concomitant]
     Indication: CONSTIPATION
     Dosage: 7.5 MG, 1X/DAY
     Route: 048
     Dates: start: 20080930
  7. ZITHROMAX [Suspect]
     Indication: PNEUMONIA ASPIRATION
     Dosage: 2 G, SINGLE
     Route: 048
     Dates: start: 20120717, end: 20120717
  8. ZESULAN [Concomitant]
     Indication: PRURITUS
     Dosage: 3 MG, 2X/DAY
     Route: 048
     Dates: start: 20071205
  9. ACECOL [Concomitant]
     Indication: RENOVASCULAR HYPERTENSION
     Dosage: 2 MG, 1X/DAY
     Route: 048
     Dates: start: 20090604

REACTIONS (2)
  - DRUG INTERACTION [None]
  - HYPOGLYCAEMIA [None]
